FAERS Safety Report 25090662 (Version 1)
Quarter: 2025Q1

REPORT INFORMATION
  Report Type: Spontaneous
  Country: US (occurrence: None)
  Receive Date: 20250318
  Receipt Date: 20250318
  Transmission Date: 20250408
  Serious: No
  Sender: FDA-CTU
  Company Number: None

PATIENT

DRUGS (1)
  1. ESTRADIOL\NORETHINDRONE [Suspect]
     Active Substance: ESTRADIOL\NORETHINDRONE

REACTIONS (3)
  - Vaginal haemorrhage [None]
  - Headache [None]
  - Quality of life decreased [None]
